FAERS Safety Report 26087095 (Version 1)
Quarter: 2025Q4

REPORT INFORMATION
  Report Type: Spontaneous
  Country: CN (occurrence: CN)
  Receive Date: 20251125
  Receipt Date: 20251125
  Transmission Date: 20260118
  Serious: Yes (Other)
  Sender: NOVARTIS
  Company Number: CN-002147023-NVSC2025CN180017

PATIENT

DRUGS (1)
  1. VALSARTAN [Suspect]
     Active Substance: VALSARTAN
     Indication: Glomerulonephritis chronic
     Dosage: 80 MG, QD
     Route: 048

REACTIONS (2)
  - Hyperkalaemia [Unknown]
  - Off label use [Unknown]
